FAERS Safety Report 20236615 (Version 1)
Quarter: 2021Q4

REPORT INFORMATION
  Report Type: Spontaneous
  Country: US (occurrence: None)
  Receive Date: 20211227
  Receipt Date: 20211227
  Transmission Date: 20220303
  Serious: Yes (Disabling, Other)
  Sender: FDA-Public Use
  Company Number: None

PATIENT
  Age: 75 Year
  Sex: Male
  Weight: 81 kg

DRUGS (13)
  1. ELIQUIS [Suspect]
     Active Substance: APIXABAN
     Indication: Thrombosis prophylaxis
     Dates: start: 20170731, end: 20211227
  2. Resmed S10 ASV PAP [Concomitant]
  3. Metroprolol Suc [Concomitant]
  4. FINASTERIDE [Concomitant]
     Active Substance: FINASTERIDE
  5. LANSOPRAZOLE [Concomitant]
     Active Substance: LANSOPRAZOLE
  6. METRONIDAZOLE [Concomitant]
     Active Substance: METRONIDAZOLE
  7. TAMSULOSIN [Concomitant]
     Active Substance: TAMSULOSIN
  8. Glucosamine +D3 [Concomitant]
  9. VITAMIN B12 [Concomitant]
     Active Substance: CYANOCOBALAMIN
  10. MELATONIN [Concomitant]
     Active Substance: MELATONIN
  11. MAGNESIUM [Concomitant]
     Active Substance: MAGNESIUM
  12. PROBIOTICS NOS [Concomitant]
     Active Substance: PROBIOTICS NOS
  13. Generic vitamin [Concomitant]

REACTIONS (4)
  - Atrial fibrillation [None]
  - Muscular weakness [None]
  - Headache [None]
  - Dizziness [None]

NARRATIVE: CASE EVENT DATE: 20171101
